FAERS Safety Report 24622735 (Version 1)
Quarter: 2024Q4

REPORT INFORMATION
  Report Type: Spontaneous
  Country: JP (occurrence: JP)
  Receive Date: 20241115
  Receipt Date: 20241115
  Transmission Date: 20250114
  Serious: Yes (Other)
  Sender: ASTELLAS
  Company Number: JP-ASTELLAS-2024-AER-014089

PATIENT
  Age: 6 Month
  Sex: Male

DRUGS (4)
  1. PROGRAF [Suspect]
     Active Substance: TACROLIMUS
     Indication: Immunosuppressant drug therapy
     Route: 065
  2. CEFOTAXIME [Concomitant]
     Active Substance: CEFOTAXIME SODIUM
     Indication: Infection prophylaxis
     Route: 065
  3. AMPICILLIN [Concomitant]
     Active Substance: AMPICILLIN
     Indication: Infection prophylaxis
     Route: 065
  4. GANCICLOVIR [Concomitant]
     Active Substance: GANCICLOVIR
     Indication: Prophylaxis
     Route: 065

REACTIONS (2)
  - Perforation bile duct [Recovered/Resolved]
  - Fungal infection [Recovered/Resolved]
